FAERS Safety Report 6007053-8 (Version None)
Quarter: 2008Q4

REPORT INFORMATION
  Report Type: 
  Country: None (occurrence: None)
  Receive Date: 20081217
  Receipt Date: 20071227
  Transmission Date: 20090506
  Serious: No
  Sender: FDA-Public Use
  Company Number: US-ASTRAZENECA-2007UW29038

PATIENT
  Age: 67 Year
  Sex: Male
  Weight: 81.6 kg

DRUGS (2)
  1. CRESTOR [Suspect]
     Indication: BLOOD CHOLESTEROL INCREASED
     Route: 048
  2. BLOOD PRESSURE MEDICATIONS [Concomitant]

REACTIONS (3)
  - ARTHRALGIA [None]
  - MUSCLE RIGIDITY [None]
  - PAIN IN EXTREMITY [None]
